FAERS Safety Report 7353643-X (Version None)
Quarter: 2011Q1

REPORT INFORMATION
  Report Type: 
  Country: None (occurrence: None)
  Receive Date: 20110303
  Receipt Date: 20100622
  Transmission Date: 20110831
  Serious: Yes (Other)
  Sender: FDA-Public Use
  Company Number: US-004638

PATIENT
  Age: 16 Year
  Sex: Male

DRUGS (3)
  1. ISOVUE-300 [Suspect]
     Indication: ROAD TRAFFIC ACCIDENT
     Dosage: 75ML ONCE INTRAVENOUS (NOT OTHERWISE SPECIFIED)
     Route: 042
     Dates: start: 20100615, end: 20100615
  2. ISOVUE-300 [Suspect]
     Indication: HEADACHE
     Dosage: 75ML ONCE INTRAVENOUS (NOT OTHERWISE SPECIFIED)
     Route: 042
     Dates: start: 20100615, end: 20100615
  3. ISOVUE-300 [Suspect]
     Indication: SCAN BRAIN
     Dosage: 75ML ONCE INTRAVENOUS (NOT OTHERWISE SPECIFIED)
     Route: 042
     Dates: start: 20100615, end: 20100615

REACTIONS (4)
  - URTICARIA [None]
  - PRURITUS [None]
  - CONVULSION [None]
  - LOSS OF CONSCIOUSNESS [None]
